FAERS Safety Report 4486104-6 (Version None)
Quarter: 2004Q4

REPORT INFORMATION
  Report Type: 
  Country: None (occurrence: None)
  Receive Date: 20041026
  Receipt Date: 20030605
  Transmission Date: 20050328
  Serious: Yes (Hospitalization)
  Sender: FDA-Public Use
  Company Number: US-MERCK-0306USA00867

PATIENT
  Age: 70 Year
  Sex: Male

DRUGS (2)
  1. VIOXX [Suspect]
     Indication: PAIN
     Route: 048
     Dates: start: 20000628
  2. VIOXX [Suspect]
     Route: 048
     Dates: start: 20000828

REACTIONS (9)
  - ADVERSE EVENT [None]
  - CARDIAC FAILURE CONGESTIVE [None]
  - CARDIOMEGALY [None]
  - DYSPNOEA [None]
  - HYPERTENSION [None]
  - HYPOXIA [None]
  - LOCALISED OSTEOARTHRITIS [None]
  - MENISCUS LESION [None]
  - SINUS BRADYCARDIA [None]
